FAERS Safety Report 18599435 (Version 1)
Quarter: 2020Q4

REPORT INFORMATION
  Report Type: Spontaneous
  Country: JP (occurrence: JP)
  Receive Date: 20201210
  Receipt Date: 20201210
  Transmission Date: 20210114
  Serious: Yes (Hospitalization)
  Sender: FDA-Public Use
  Company Number: JP-AMGEN-JPNSP2020200710

PATIENT
  Age: 8 Decade
  Sex: Male

DRUGS (1)
  1. PARSABIV [Suspect]
     Active Substance: ETELCALCETIDE HYDROCHLORIDE
     Indication: HYPERPARATHYROIDISM SECONDARY
     Dosage: 5 MG, Q56H
     Route: 010
     Dates: start: 202004, end: 202010

REACTIONS (4)
  - Headache [Unknown]
  - Decreased appetite [Recovered/Resolved]
  - Alopecia [Recovered/Resolved with Sequelae]
  - Hair colour changes [Unknown]

NARRATIVE: CASE EVENT DATE: 202007
